FAERS Safety Report 13320154 (Version 8)
Quarter: 2021Q4

REPORT INFORMATION
  Report Type: Report from Study
  Country: GB (occurrence: GB)
  Receive Date: 20170310
  Receipt Date: 20211116
  Transmission Date: 20220304
  Serious: Yes (Life-Threatening, Hospitalization)
  Sender: FDA-Public Use
  Company Number: GB-CELGENE-GBR-2016014629

PATIENT
  Age: 65 Year
  Sex: Female

DRUGS (31)
  1. ABRAXANE [Suspect]
     Active Substance: PACLITAXEL
     Indication: Breast cancer metastatic
     Dosage: 190 MG/M2
     Route: 041
     Dates: start: 20151209, end: 20160113
  2. ABRAXANE [Suspect]
     Active Substance: PACLITAXEL
     Route: 041
     Dates: end: 20160106
  3. PLACEBO [Suspect]
     Active Substance: UNSPECIFIED INGREDIENT
     Indication: Breast cancer metastatic
     Dosage: 840 MG
     Route: 041
     Dates: start: 20151209, end: 20160106
  4. SIMVASTATIN [Concomitant]
     Active Substance: SIMVASTATIN
     Indication: Blood cholesterol increased
     Route: 065
     Dates: start: 2010, end: 20160327
  5. INDAPAMIDE [Concomitant]
     Active Substance: INDAPAMIDE
     Indication: Hypertension
     Route: 065
     Dates: start: 2010, end: 20160327
  6. ENALAPRIL [Concomitant]
     Active Substance: ENALAPRIL
     Indication: Hypertension
     Route: 065
     Dates: start: 2010, end: 20160327
  7. LINAGLIPTIN [Concomitant]
     Active Substance: LINAGLIPTIN
     Indication: Diabetes mellitus
     Route: 065
     Dates: start: 201509, end: 20160327
  8. OMEPRAZOLE [Concomitant]
     Active Substance: OMEPRAZOLE
     Indication: Prophylaxis
     Route: 065
     Dates: start: 20151014, end: 20160327
  9. OMEPRAZOLE [Concomitant]
     Active Substance: OMEPRAZOLE
     Indication: Prophylaxis
  10. MORPHINE SULFATE [Concomitant]
     Active Substance: MORPHINE SULFATE
     Indication: Arthralgia
     Route: 065
     Dates: start: 20151028
  11. MORPHINE SULFATE [Concomitant]
     Active Substance: MORPHINE SULFATE
     Indication: Arthralgia
     Route: 065
     Dates: start: 20151028, end: 20160327
  12. IBUPROFEN [Concomitant]
     Active Substance: IBUPROFEN
     Indication: Arthralgia
     Route: 065
     Dates: start: 20151028, end: 20160327
  13. DOMPERIDONE [Concomitant]
     Active Substance: DOMPERIDONE
     Indication: Vomiting
     Route: 065
     Dates: start: 20151230
  14. DOMPERIDONE [Concomitant]
     Active Substance: DOMPERIDONE
     Route: 065
     Dates: start: 20160120, end: 20160327
  15. POLYETHYLENE GLYCOL 3350\POTASSIUM CHLORIDE\SODIUM BICARBONATE\SODIUM [Concomitant]
     Active Substance: POLYETHYLENE GLYCOL 3350\POTASSIUM CHLORIDE\SODIUM BICARBONATE\SODIUM CHLORIDE
     Indication: Constipation
     Dosage: 2 SACHETS
     Route: 065
     Dates: start: 20151209, end: 20160327
  16. COCODAMOL [Concomitant]
     Active Substance: ACETAMINOPHEN\CODEINE PHOSPHATE
     Indication: Arthralgia
     Route: 065
     Dates: start: 20151028, end: 20160208
  17. PIPERACILLIN SODIUM\TAZOBACTAM SODIUM [Concomitant]
     Active Substance: PIPERACILLIN SODIUM\TAZOBACTAM SODIUM
     Indication: Sepsis
     Dosage: 13.5 G
     Route: 041
     Dates: start: 20160116, end: 20160120
  18. ENOXAPARIN [Concomitant]
     Active Substance: ENOXAPARIN
     Indication: Thrombosis prophylaxis
     Route: 065
     Dates: start: 20160116, end: 20160327
  19. MORPHINE SULFATE [Concomitant]
     Active Substance: MORPHINE SULFATE
     Indication: Arthralgia
     Route: 065
     Dates: start: 20160116, end: 20160327
  20. AMOXICILLIN\CLAVULANATE POTASSIUM [Concomitant]
     Active Substance: AMOXICILLIN\CLAVULANATE POTASSIUM
     Indication: Sepsis
     Route: 065
     Dates: start: 20160120, end: 20160125
  21. SENNA [Concomitant]
     Active Substance: SENNA LEAF\SENNOSIDES\SENNOSIDES A AND B
     Indication: Constipation
     Route: 065
     Dates: start: 20160121, end: 20160327
  22. MAGNASPARTATE [Concomitant]
     Indication: Blood magnesium decreased
     Route: 065
     Dates: start: 20160127, end: 20160228
  23. DOCUSATE SODIUM [Concomitant]
     Active Substance: DOCUSATE SODIUM
     Indication: Constipation
     Route: 065
     Dates: start: 20160118, end: 20160227
  24. Sando K [Concomitant]
     Indication: Blood potassium decreased
     Route: 065
  25. ONDANSETRON [Concomitant]
     Active Substance: ONDANSETRON
     Indication: Nausea
     Route: 065
     Dates: start: 20160118, end: 20160118
  26. MAGNESIUM SULFATE [Concomitant]
     Active Substance: MAGNESIUM SULFATE
     Indication: Blood magnesium decreased
     Route: 065
     Dates: start: 20160127, end: 20160128
  27. POTASSIUM CHLORIDE [Concomitant]
     Active Substance: POTASSIUM CHLORIDE
     Indication: Blood potassium decreased
     Route: 065
     Dates: start: 20160202, end: 20160202
  28. OXYCODONE [Concomitant]
     Active Substance: OXYCODONE
     Indication: Arthralgia
     Route: 065
     Dates: start: 20160224, end: 20160327
  29. FENTANYL CITRATE [Concomitant]
     Active Substance: FENTANYL CITRATE
     Indication: Arthralgia
     Route: 065
     Dates: start: 20160223, end: 20160327
  30. CODEINE [Concomitant]
     Active Substance: CODEINE
     Indication: Arthralgia
     Route: 065
     Dates: start: 20160222, end: 20160224
  31. ACETAMINOPHEN [Concomitant]
     Active Substance: ACETAMINOPHEN
     Indication: Arthralgia
     Route: 065
     Dates: start: 20160208, end: 20160327

REACTIONS (4)
  - Supraventricular tachycardia [Recovered/Resolved]
  - Supraventricular tachycardia [Recovered/Resolved]
  - Post procedural complication [Not Recovered/Not Resolved]
  - Sepsis [Recovered/Resolved]

NARRATIVE: CASE EVENT DATE: 20160116
